FAERS Safety Report 7916878-0 (Version None)
Quarter: 2011Q4

REPORT INFORMATION
  Report Type: 
  Country: None (occurrence: None)
  Receive Date: 20111116
  Receipt Date: 20111110
  Transmission Date: 20120403
  Serious: Yes (Other)
  Sender: FDA-Public Use
  Company Number: GB-ASTELLAS-2011EU005068

PATIENT
  Age: 51 Year
  Sex: Female
  Weight: 60 kg

DRUGS (4)
  1. BENDROFLUAZIDE [Concomitant]
     Dosage: 2.5 MG, UNKNOWN/D
     Route: 048
  2. OMEPRAZOLE [Concomitant]
     Dosage: 20 MG, UNKNOWN/D
     Route: 048
  3. SERTRALINE HYDROCHLORIDE [Concomitant]
     Dosage: 50 MG, UNKNOWN/D
     Route: 048
  4. VESICARE [Suspect]
     Indication: URINARY INCONTINENCE
     Dosage: 10 MG, UID/QD
     Route: 048
     Dates: start: 20110112

REACTIONS (3)
  - AMNESIA [None]
  - ALCOHOL INTOLERANCE [None]
  - DISORIENTATION [None]
